FAERS Safety Report 9517385 (Version 1)
Quarter: 2013Q3

REPORT INFORMATION
  Report Type: Spontaneous
  Country: US (occurrence: US)
  Receive Date: 20130911
  Receipt Date: 20130911
  Transmission Date: 20140515
  Serious: Yes (Other)
  Sender: FDA-Public Use
  Company Number: CHPA2013US013914

PATIENT
  Age: 65 Year
  Sex: Female

DRUGS (6)
  1. PREVACID 24HR 15MG [Suspect]
     Indication: GASTROOESOPHAGEAL REFLUX DISEASE
     Dosage: 15 MG, QD
     Route: 048
  2. PREVACID 24HR 15MG [Suspect]
     Indication: DYSPEPSIA
     Dosage: 15 MG, QD
     Route: 048
  3. PREVACID [Concomitant]
     Indication: GASTROOESOPHAGEAL REFLUX DISEASE
     Route: 048
  4. PREVACID [Concomitant]
     Indication: DYSPEPSIA
  5. ARTHROTEC [Concomitant]
     Indication: RHEUMATOID ARTHRITIS
     Dosage: 75 MG, BID
     Route: 065
  6. PLAQUENIL [Concomitant]
     Indication: SYSTEMIC LUPUS ERYTHEMATOSUS
     Dosage: UNK, UNK
     Route: 065

REACTIONS (5)
  - Hiatus hernia [Not Recovered/Not Resolved]
  - Blood cholesterol increased [Not Recovered/Not Resolved]
  - Abdominal pain upper [Recovered/Resolved]
  - Off label use [Unknown]
  - Inappropriate schedule of drug administration [Unknown]
